FAERS Safety Report 16252924 (Version 1)
Quarter: 2019Q2

REPORT INFORMATION
  Report Type: Spontaneous
  Country: JP (occurrence: JP)
  Receive Date: 20190429
  Receipt Date: 20190429
  Transmission Date: 20190711
  Serious: Yes (Death, Other)
  Sender: FDA-Public Use
  Company Number: JP-009507513-1806JPN003156J

PATIENT
  Age: 74 Year
  Sex: Male

DRUGS (3)
  1. KEYTRUDA [Suspect]
     Active Substance: PEMBROLIZUMAB
     Indication: NON-SMALL CELL LUNG CANCER
     Dosage: 200 MILLIGRAM, Q3W
     Route: 041
     Dates: start: 20180413, end: 201807
  2. RINDERON [BETAMETHASONE] [Concomitant]
     Active Substance: BETAMETHASONE
     Dosage: UNK
     Route: 048
  3. KEYTRUDA [Suspect]
     Active Substance: PEMBROLIZUMAB
     Dosage: 200 MILLIGRAM, Q3W
     Route: 041
     Dates: start: 2018, end: 20180903

REACTIONS (4)
  - Adrenal insufficiency [Recovered/Resolved]
  - Malignant neoplasm progression [Unknown]
  - Death [Fatal]
  - Aptyalism [Unknown]

NARRATIVE: CASE EVENT DATE: 2018
